FAERS Safety Report 25739867 (Version 1)
Quarter: 2025Q3

REPORT INFORMATION
  Report Type: Spontaneous
  Country: US (occurrence: US)
  Receive Date: 20250829
  Receipt Date: 20250829
  Transmission Date: 20251021
  Serious: Yes (Other)
  Sender: ROCHE
  Company Number: US-ROCHE-10000372801

PATIENT
  Sex: Female

DRUGS (9)
  1. XOLAIR [Suspect]
     Active Substance: OMALIZUMAB
     Indication: Idiopathic urticaria
     Dosage: STRENGTH:300MG/2ML
     Route: 058
     Dates: start: 202412
  2. EPIPEN [Concomitant]
     Active Substance: EPINEPHRINE
  3. COLLAGEN [Concomitant]
     Active Substance: COLLAGEN
  4. BIOTIN [Concomitant]
     Active Substance: BIOTIN
  5. FEXOFENADINE [Concomitant]
     Active Substance: FEXOFENADINE HYDROCHLORIDE
  6. FISH OIL [Concomitant]
     Active Substance: FISH OIL
  7. FAMOTIDINE [Concomitant]
     Active Substance: FAMOTIDINE
  8. ATENOLOL [Concomitant]
     Active Substance: ATENOLOL
  9. DULOXETINE [Concomitant]
     Active Substance: DULOXETINE

REACTIONS (2)
  - Cardiac failure [Unknown]
  - Off label use [Unknown]
